FAERS Safety Report 16110824 (Version 1)
Quarter: 2019Q1

REPORT INFORMATION
  Report Type: Spontaneous
  Country: US (occurrence: US)
  Receive Date: 20190325
  Receipt Date: 20190325
  Transmission Date: 20190418
  Serious: Yes (Life-Threatening, Hospitalization)
  Sender: FDA-Public Use
  Company Number: US-TRIS PHARMA, INC.-2019TRISPO00367

PATIENT

DRUGS (1)
  1. KARBINAL ER [Suspect]
     Active Substance: CARBINOXAMINE MALEATE
     Indication: RHINORRHOEA
     Dosage: ONE DOSE IN EVENING
     Route: 065

REACTIONS (6)
  - Arrhythmia [Unknown]
  - Tachycardia [Unknown]
  - Vomiting [Unknown]
  - Cardio-respiratory arrest [Unknown]
  - Haematemesis [Unknown]
  - Pyrexia [Unknown]
